FAERS Safety Report 9496889 (Version 1)
Quarter: 2013Q3

REPORT INFORMATION
  Report Type: Spontaneous
  Country: US (occurrence: None)
  Receive Date: 20130903
  Receipt Date: 20130903
  Transmission Date: 20140515
  Serious: Yes (Disabling)
  Sender: FDA-Public Use
  Company Number: None

PATIENT
  Age: 17 Year
  Sex: Female
  Weight: 49.9 kg

DRUGS (1)
  1. LEVAQUIN [Suspect]
     Indication: SINUSITIS
     Route: 048
     Dates: start: 20130101, end: 20130102

REACTIONS (8)
  - Dizziness [None]
  - Feeling abnormal [None]
  - Tendon pain [None]
  - Pain [None]
  - Activities of daily living impaired [None]
  - Malaise [None]
  - Fatigue [None]
  - Eye infection [None]
